FAERS Safety Report 22969311 (Version 4)
Quarter: 2024Q1

REPORT INFORMATION
  Report Type: Spontaneous
  Country: US (occurrence: US)
  Receive Date: 20230922
  Receipt Date: 20240102
  Transmission Date: 20240410
  Serious: Yes (Hospitalization)
  Sender: FDA-Public Use
  Company Number: US-JNJFOC-20230943122

PATIENT
  Sex: Male

DRUGS (1)
  1. REMICADE [Suspect]
     Active Substance: INFLIXIMAB
     Indication: Product used for unknown indication
     Route: 041
     Dates: end: 20230919

REACTIONS (5)
  - Hospitalisation [Unknown]
  - Gastrointestinal inflammation [Unknown]
  - Gastrointestinal disorder [Unknown]
  - Anaemia [Unknown]
  - Drug ineffective [Unknown]
